FAERS Safety Report 6695459-3 (Version None)
Quarter: 2010Q2

REPORT INFORMATION
  Report Type: 
  Country: None (occurrence: None)
  Receive Date: 20100422
  Receipt Date: 20100422
  Transmission Date: 20101027
  Serious: Yes (Hospitalization)
  Sender: FDA-Public Use
  Company Number: None

PATIENT
  Age: 36 Year
  Sex: Female

DRUGS (1)
  1. PREVACID [Suspect]
     Route: 048
     Dates: start: 20100201, end: 20100201

REACTIONS (6)
  - DIZZINESS [None]
  - HEADACHE [None]
  - HEMIPLEGIA [None]
  - LETHARGY [None]
  - PRODUCT SUBSTITUTION ISSUE [None]
  - VISION BLURRED [None]
